FAERS Safety Report 10755280 (Version 2)
Quarter: 2015Q3

REPORT INFORMATION
  Report Type: Report from Study
  Country: AR (occurrence: AR)
  Receive Date: 20150202
  Receipt Date: 20150711
  Transmission Date: 20151125
  Serious: Yes (Death, Hospitalization)
  Sender: FDA-Public Use
  Company Number: AR-BRISTOL-MYERS SQUIBB COMPANY-20589313

PATIENT
  Age: 63 Year
  Sex: Male

DRUGS (8)
  1. PLACEBO [Suspect]
     Active Substance: UNSPECIFIED INGREDIENT
     Indication: NON-SMALL CELL LUNG CANCER
     Dosage: 744 MG, UNK
     Route: 042
     Dates: start: 20140203, end: 20140203
  2. PLACEBO [Suspect]
     Active Substance: UNSPECIFIED INGREDIENT
     Indication: NON-SMALL CELL LUNG CANCER
     Dosage: 1 DOSAGE = 639.9 UNITS NOT PROVIDED
     Route: 042
     Dates: start: 20131219, end: 20140203
  3. BLINDED IPILIMUMAB [Suspect]
     Active Substance: IPILIMUMAB
     Indication: NON-SMALL CELL LUNG CANCER
     Dosage: 318 MG, UNK
     Route: 042
     Dates: start: 20131219, end: 20140203
  4. BLINDED PACLITAXEL [Suspect]
     Active Substance: PACLITAXEL
     Indication: NON-SMALL CELL LUNG CANCER
     Dosage: 318 MG, UNK
     Route: 042
     Dates: start: 20131219, end: 20140203
  5. BLINDED IPILIMUMAB [Suspect]
     Active Substance: IPILIMUMAB
     Indication: NON-SMALL CELL LUNG CANCER
     Dosage: 1 DOSAGE = 639.9 UNITS NOT PROVIDED
     Route: 042
     Dates: start: 20131219, end: 20140203
  6. BLINDED IPILIMUMAB [Suspect]
     Active Substance: IPILIMUMAB
     Indication: NON-SMALL CELL LUNG CANCER
     Dosage: 744 MG, UNK
     Route: 042
     Dates: start: 20140203, end: 20140203
  7. BLINDED CARBOPLATIN [Suspect]
     Active Substance: CARBOPLATIN
     Indication: NON-SMALL CELL LUNG CANCER
     Dosage: 1 DOSAGE = 639.9 UNITS NOT PROVIDED
     Route: 042
     Dates: start: 20131219, end: 20140203
  8. PLACEBO [Suspect]
     Active Substance: UNSPECIFIED INGREDIENT
     Indication: NON-SMALL CELL LUNG CANCER
     Dosage: 318 MG, UNK
     Route: 042
     Dates: start: 20131219, end: 20140203

REACTIONS (2)
  - Post procedural complication [Fatal]
  - Crohn^s disease [Not Recovered/Not Resolved]

NARRATIVE: CASE EVENT DATE: 20140327
